FAERS Safety Report 19523380 (Version 1)
Quarter: 2021Q3

REPORT INFORMATION
  Report Type: Report from Study
  Country: VN (occurrence: VN)
  Receive Date: 20210712
  Receipt Date: 20210712
  Transmission Date: 20211014
  Serious: Yes (Hospitalization)
  Sender: FDA-Public Use
  Company Number: NVSC2021VN150587

PATIENT
  Sex: Male

DRUGS (3)
  1. EZETIMIBE. [Concomitant]
     Active Substance: EZETIMIBE
     Indication: ISCHAEMIC STROKE
     Dosage: 10 MG
     Route: 065
  2. ATORVASTATIN [Suspect]
     Active Substance: ATORVASTATIN
     Dosage: 10 UNK
     Route: 065
  3. ATORVASTATIN [Suspect]
     Active Substance: ATORVASTATIN
     Indication: ISCHAEMIC STROKE
     Dosage: 20 MG
     Route: 065

REACTIONS (1)
  - Low density lipoprotein increased [Unknown]
